FAERS Safety Report 25237972 (Version 1)
Quarter: 2025Q2

REPORT INFORMATION
  Report Type: Report from Study
  Country: CN (occurrence: CN)
  Receive Date: 20250425
  Receipt Date: 20250425
  Transmission Date: 20250717
  Serious: Yes (Other)
  Sender: ROCHE
  Company Number: CN-ROCHE-10000265919

PATIENT
  Age: 63 Year
  Sex: Female

DRUGS (4)
  1. BEVACIZUMAB [Suspect]
     Active Substance: BEVACIZUMAB
     Indication: HER2 mutant non-small cell lung cancer
     Route: 065
     Dates: start: 20210326
  2. PYROTINIB [Suspect]
     Active Substance: PYROTINIB
     Indication: HER2 mutant non-small cell lung cancer
     Route: 065
     Dates: start: 20210326
  3. CARBOPLATIN [Suspect]
     Active Substance: CARBOPLATIN
     Indication: HER2 mutant non-small cell lung cancer
     Route: 065
     Dates: start: 20210326
  4. PEMETREXED [Suspect]
     Active Substance: PEMETREXED
     Indication: HER2 mutant non-small cell lung cancer
     Route: 065
     Dates: start: 20210326

REACTIONS (6)
  - Diarrhoea [Unknown]
  - Myelosuppression [Unknown]
  - Alanine aminotransferase increased [Unknown]
  - Aspartate aminotransferase increased [Unknown]
  - Fatigue [Unknown]
  - Decreased appetite [Unknown]
